FAERS Safety Report 11908085 (Version 1)
Quarter: 2016Q1

REPORT INFORMATION
  Report Type: Report from Study
  Country: US (occurrence: US)
  Receive Date: 20160111
  Receipt Date: 20160111
  Transmission Date: 20160526
  Serious: No
  Sender: FDA-Public Use
  Company Number: PHEH2016US000743

PATIENT
  Age: 66 Year
  Sex: Female

DRUGS (3)
  1. IMATINIB [Suspect]
     Active Substance: IMATINIB
     Dosage: 300 MG, UNK
     Route: 048
     Dates: start: 2012, end: 2015
  2. IMATINIB [Suspect]
     Active Substance: IMATINIB
     Indication: CHRONIC MYELOID LEUKAEMIA
     Dosage: 400 MG, QD
     Route: 048
     Dates: start: 2010
  3. NILOTINIB [Suspect]
     Active Substance: NILOTINIB
     Indication: CHRONIC MYELOID LEUKAEMIA
     Dosage: 600 MG, BID
     Route: 048
     Dates: start: 2011

REACTIONS (8)
  - Hypertension [Unknown]
  - Pain [Unknown]
  - Muscle spasms [Unknown]
  - Pallor [Recovered/Resolved]
  - Psoriasis [Unknown]
  - Medial tibial stress syndrome [Unknown]
  - Diarrhoea [Unknown]
  - Platelet count increased [Unknown]
